FAERS Safety Report 7395649-0 (Version None)
Quarter: 2011Q2

REPORT INFORMATION
  Report Type: 
  Country: None (occurrence: None)
  Receive Date: 20110405
  Receipt Date: 20110327
  Transmission Date: 20111010
  Serious: Yes (Other)
  Sender: FDA-Public Use
  Company Number: DE-CEPHALON-2011001492

PATIENT
  Age: 59 Year
  Sex: Male

DRUGS (6)
  1. CIPROFLOXACIN [Concomitant]
  2. DURAGESIC-50 [Concomitant]
     Indication: PAIN
  3. ALNA [Concomitant]
  4. MODAFINIL [Suspect]
     Indication: SLEEP APNOEA SYNDROME
     Route: 048
  5. KENTERA [Concomitant]
  6. EMSELEX [Concomitant]

REACTIONS (6)
  - HEADACHE [None]
  - LOSS OF CONSCIOUSNESS [None]
  - OVERDOSE [None]
  - VOMITING [None]
  - DRUG INEFFECTIVE [None]
  - COUGH [None]
